FAERS Safety Report 8958389 (Version 1)
Quarter: 2012Q4

REPORT INFORMATION
  Report Type: 
  Country: FR (occurrence: FR)
  Receive Date: 20121210
  Receipt Date: 20121210
  Transmission Date: 20130627
  Serious: Yes (Death, Life-Threatening)
  Sender: FDA-Public Use
  Company Number: FR-GLAXOSMITHKLINE-B0847573A

PATIENT
  Age: 62 None
  Sex: Female

DRUGS (3)
  1. ARIXTRA [Suspect]
     Indication: PRODUCT USED FOR UNKNOWN INDICATION
     Route: 058
     Dates: start: 20121031, end: 20121101
  2. LOVENOX [Suspect]
     Indication: PROPHYLAXIS
     Route: 058
     Dates: start: 20121026, end: 20121030
  3. ORGARAN [Suspect]
     Indication: PRODUCT USED FOR UNKNOWN INDICATION
     Route: 058
     Dates: start: 20121102

REACTIONS (5)
  - Cerebral ischaemia [Fatal]
  - Thrombocytopenia [Fatal]
  - Thrombosis [Fatal]
  - General physical health deterioration [Not Recovered/Not Resolved]
  - Loss of consciousness [Not Recovered/Not Resolved]
